FAERS Safety Report 5988954-3 (Version None)
Quarter: 2008Q4

REPORT INFORMATION
  Report Type: 
  Country: None (occurrence: None)
  Receive Date: 20081208
  Receipt Date: 20081208
  Transmission Date: 20090506
  Serious: Yes (Other)
  Sender: FDA-Public Use
  Company Number: None

PATIENT
  Sex: Male
  Weight: 95.2554 kg

DRUGS (2)
  1. CYMBALTA [Suspect]
     Indication: DEPRESSION
     Dosage: 30 MG 1 DAILY PO
     Route: 048
  2. CLONIDINE [Suspect]
     Indication: HYPERTENSION
     Dosage: 0.2 1-2 TIMES DAILY PO  PAST 10-13 YEARS
     Route: 048

REACTIONS (10)
  - CHILLS [None]
  - CONFUSIONAL STATE [None]
  - DEPRESSION [None]
  - FEELING HOT [None]
  - INAPPROPRIATE SCHEDULE OF DRUG ADMINISTRATION [None]
  - MEMORY IMPAIRMENT [None]
  - OVERDOSE [None]
  - PAIN [None]
  - PARAESTHESIA [None]
  - UNEMPLOYMENT [None]
